FAERS Safety Report 7881374-6 (Version None)
Quarter: 2011Q4

REPORT INFORMATION
  Report Type: 
  Country: None (occurrence: None)
  Receive Date: 20111101
  Receipt Date: 20110527
  Transmission Date: 20120403
  Serious: No
  Sender: FDA-Public Use
  Company Number: US-AMGEN-USASP2011027686

PATIENT
  Age: 39 Year
  Sex: Female
  Weight: 70.295 kg

DRUGS (12)
  1. CELEBREX [Concomitant]
     Dosage: 100 MG, UNK
  2. LOESTRIN FE 1/20 [Concomitant]
  3. PREVACID [Concomitant]
     Dosage: 15 MG, UNK
  4. PLAQUENIL [Concomitant]
     Dosage: 200 MG, UNK
  5. LOTEMAX [Concomitant]
  6. SYNTHROID [Concomitant]
     Dosage: 25 MUG, UNK
  7. SINGULAIR [Concomitant]
     Dosage: 4 MG, UNK
  8. ULTRAM [Concomitant]
     Dosage: 50 MG, UNK
  9. NASONEX AQUEOUS [Concomitant]
     Dosage: 50 MUG, UNK
  10. CLARINEX                           /01202601/ [Concomitant]
     Dosage: 5 MG, UNK
  11. ENBREL [Suspect]
     Indication: PRODUCT USED FOR UNKNOWN INDICATION
     Dosage: 50 MG, QWK
  12. TOPAMAX [Concomitant]
     Dosage: 25 MG, UNK

REACTIONS (3)
  - FATIGUE [None]
  - PYREXIA [None]
  - INJECTION SITE ERYTHEMA [None]
